FAERS Safety Report 23325740 (Version 1)
Quarter: 2023Q4

REPORT INFORMATION
  Report Type: Spontaneous
  Country: US (occurrence: None)
  Receive Date: 20231221
  Receipt Date: 20231221
  Transmission Date: 20240110
  Serious: Yes (Hospitalization)
  Sender: FDA-Public Use
  Company Number: 2023A286062

PATIENT
  Sex: Female

DRUGS (1)
  1. SAPHNELO [Suspect]
     Active Substance: ANIFROLUMAB-FNIA

REACTIONS (7)
  - Scar [Unknown]
  - Procedural complication [Unknown]
  - Device breakage [Unknown]
  - COVID-19 [Unknown]
  - Bronchitis [Unknown]
  - Illness [Unknown]
  - Asthma [Unknown]
